FAERS Safety Report 10886383 (Version 2)
Quarter: 2015Q2

REPORT INFORMATION
  Report Type: Report from Study
  Country: US (occurrence: US)
  Receive Date: 20150304
  Receipt Date: 20150603
  Transmission Date: 20150821
  Serious: Yes (Other)
  Sender: FDA-Public Use
  Company Number: US-SA-2014SA025189

PATIENT
  Age: 58 Year
  Sex: Female

DRUGS (1)
  1. AUBAGIO [Suspect]
     Active Substance: TERIFLUNOMIDE
     Indication: MULTIPLE SCLEROSIS
     Route: 048
     Dates: start: 20140221

REACTIONS (18)
  - Multiple sclerosis relapse [Unknown]
  - Nail disorder [Unknown]
  - Dyspnoea [Recovering/Resolving]
  - Alopecia [Recovered/Resolved]
  - Pelvic prolapse [Unknown]
  - Migraine [Recovering/Resolving]
  - Skin discolouration [Unknown]
  - Blood pressure increased [Recovering/Resolving]
  - Nasopharyngitis [Unknown]
  - Chills [Unknown]
  - Dysphonia [Unknown]
  - Headache [Unknown]
  - Fatigue [Unknown]
  - Aphonia [Unknown]
  - Hair texture abnormal [Unknown]
  - Sinusitis [Not Recovered/Not Resolved]
  - Hypoaesthesia [Unknown]
  - Muscle spasms [Unknown]

NARRATIVE: CASE EVENT DATE: 201409
